FAERS Safety Report 15697201 (Version 1)
Quarter: 2018Q4

REPORT INFORMATION
  Report Type: Spontaneous
  Country: FR (occurrence: FR)
  Receive Date: 20181206
  Receipt Date: 20181206
  Transmission Date: 20190205
  Serious: Yes (Hospitalization)
  Sender: FDA-Public Use
  Company Number: FR-PFIZER INC-2018499247

PATIENT
  Age: 68 Year
  Sex: Female
  Weight: 66 kg

DRUGS (17)
  1. FLUOROURACIL. [Concomitant]
     Active Substance: FLUOROURACIL
     Dosage: UNK
  2. SALBUTAMOL [Concomitant]
     Active Substance: ALBUTEROL
     Dosage: UNK
  3. PROPRANOLOL [Concomitant]
     Active Substance: PROPRANOLOL HYDROCHLORIDE
     Dosage: UNK
  4. ONDANSETRON [Concomitant]
     Active Substance: ONDANSETRON
  5. IPRATROPIUM BROMIDE. [Concomitant]
     Active Substance: IPRATROPIUM BROMIDE
  6. VENLAFAXINE [Concomitant]
     Active Substance: VENLAFAXINE HYDROCHLORIDE
     Dosage: UNK
  7. DOXYCYCLINE. [Concomitant]
     Active Substance: DOXYCYCLINE
     Dosage: UNK
  8. METFORMIN [Concomitant]
     Active Substance: METFORMIN HYDROCHLORIDE
     Dosage: UNK
  9. GLUCOSE FRESENIUS KABI [Suspect]
     Active Substance: DEXTROSE
     Indication: CHEMOTHERAPY
     Dosage: 735 MG, SINGLE
     Route: 042
     Dates: start: 20181008, end: 20181008
  10. FENTANYL. [Concomitant]
     Active Substance: FENTANYL
     Dosage: UNK
  11. LEVOTHYROX [Concomitant]
     Active Substance: LEVOTHYROXINE
     Dosage: UNK
  12. VECTIBIX [Concomitant]
     Active Substance: PANITUMUMAB
     Dosage: UNK
  13. CALCIUM FOLINATE [Concomitant]
     Active Substance: LEUCOVORIN CALCIUM
     Dosage: UNK
  14. OXALIPLATIN. [Concomitant]
     Active Substance: OXALIPLATIN
     Dosage: UNK
  15. DIAMICRON [Concomitant]
     Active Substance: GLICLAZIDE
     Dosage: UNK
  16. LYRICA [Concomitant]
     Active Substance: PREGABALIN
     Dosage: UNK
  17. SOLU-MEDROL [Suspect]
     Active Substance: METHYLPREDNISOLONE SODIUM SUCCINATE
     Indication: CHEMOTHERAPY
     Dosage: 80 MG, SINGLE
     Route: 042
     Dates: start: 20181008, end: 20181008

REACTIONS (1)
  - Coma acidotic [Recovering/Resolving]

NARRATIVE: CASE EVENT DATE: 20181009
